FAERS Safety Report 5704520-9 (Version None)
Quarter: 2008Q2

REPORT INFORMATION
  Report Type: 
  Country: None (occurrence: None)
  Receive Date: 20080411
  Receipt Date: 20080411
  Transmission Date: 20081010
  Serious: Yes (Hospitalization)
  Sender: FDA-Public Use
  Company Number: None

PATIENT
  Age: 77 Year
  Sex: Female
  Weight: 56.7 kg

DRUGS (2)
  1. ASPIRIN [Suspect]
     Dosage: ONCE DAILY PO
     Route: 048
  2. MOBIC [Suspect]
     Dosage: ONCE DAILY PO
     Route: 048

REACTIONS (2)
  - ASTHENIA [None]
  - MOUTH HAEMORRHAGE [None]
